FAERS Safety Report 5104472-9 (Version None)
Quarter: 2006Q3

REPORT INFORMATION
  Report Type: 
  Country: None (occurrence: None)
  Receive Date: 20060911
  Receipt Date: 20060905
  Transmission Date: 20061208
  Serious: Yes (Life-Threatening)
  Sender: FDA-Public Use
  Company Number: DE-2006-024819

PATIENT
  Age: 28 Year
  Sex: Female
  Weight: 70 kg

DRUGS (1)
  1. MAGNEVIST [Suspect]
     Indication: NUCLEAR MAGNETIC RESONANCE IMAGING
     Dosage: 14 ML, 1 DOSE, INTRAVENOUS
     Route: 042
     Dates: start: 20060828, end: 20060828

REACTIONS (4)
  - BRONCHOSPASM [None]
  - CIRCULATORY COLLAPSE [None]
  - PROCEDURAL COMPLICATION [None]
  - URTICARIA [None]
